FAERS Safety Report 18062623 (Version 1)
Quarter: 2020Q3

REPORT INFORMATION
  Report Type: Spontaneous
  Country: GB (occurrence: GB)
  Receive Date: 20200724
  Receipt Date: 20200724
  Transmission Date: 20201103
  Serious: Yes (Other)
  Sender: FDA-Public Use
  Company Number: GB-TEVA-2020-GB-1803933

PATIENT
  Age: 32 Year
  Sex: Female
  Weight: 88 kg

DRUGS (2)
  1. NORIDAY [Concomitant]
     Active Substance: MESTRANOL\NORETHINDRONE
     Dosage: WITHOUT A BREAK FOR AS ...UNIT DOSE: 1 DOSAGE FORMS
     Dates: start: 20191115
  2. NITROFURANTOIN. [Suspect]
     Active Substance: NITROFURANTOIN
     Dosage: 100 MG
     Route: 065

REACTIONS (2)
  - Rash macular [Recovering/Resolving]
  - Pruritus [Unknown]
